FAERS Safety Report 9305654 (Version 2)
Quarter: 2013Q2

REPORT INFORMATION
  Report Type: Spontaneous
  Country: IT (occurrence: IT)
  Receive Date: 20130523
  Receipt Date: 20130528
  Transmission Date: 20140414
  Serious: Yes (Other)
  Sender: FDA-Public Use
  Company Number: IT-PFIZER INC-2013154957

PATIENT
  Age: 64 Year
  Sex: Male
  Weight: 102 kg

DRUGS (9)
  1. ATORVASTATIN CALCIUM [Suspect]
     Dosage: 20 MG, 1X/DAY
     Route: 048
     Dates: start: 20100101, end: 20130422
  2. ENALAPRIL [Interacting]
     Dosage: 20 MG, 1X/DAY
     Route: 048
     Dates: start: 20020101, end: 20130415
  3. CARDIOASPIRIN [Concomitant]
     Indication: ISCHAEMIC CARDIOMYOPATHY
     Dosage: UNK
     Route: 048
     Dates: start: 2008
  4. REPAGLINIDE [Concomitant]
     Indication: DIABETES MELLITUS
     Dosage: UNK
     Route: 048
     Dates: start: 2010
  5. FUROSEMIDE [Concomitant]
     Route: 048
  6. ALDACTONE [Concomitant]
     Dosage: UNK
     Route: 048
  7. CARVEDILOL [Concomitant]
     Dosage: UNK
     Route: 048
  8. ANTACAL [Concomitant]
     Dosage: UNK
     Route: 048
  9. RANITIDINE [Concomitant]
     Dosage: UNK

REACTIONS (3)
  - Drug interaction [Recovered/Resolved]
  - Angioedema [Recovered/Resolved]
  - Pruritus generalised [Recovered/Resolved]
